FAERS Safety Report 25073631 (Version 1)
Quarter: 2025Q1

REPORT INFORMATION
  Report Type: Spontaneous
  Country: US (occurrence: None)
  Receive Date: 20250312
  Receipt Date: 20250312
  Transmission Date: 20250409
  Serious: Yes (Disabling)
  Sender: FDA-CTU
  Company Number: None

PATIENT
  Age: 38 Year
  Sex: Female

DRUGS (6)
  1. OSELTAMIVIR PHOSPHATE [Suspect]
     Active Substance: OSELTAMIVIR PHOSPHATE
     Indication: Influenza
     Dosage: OTHER QUANTITY : 10 ML;?FREQUENCY : TWICE A DAY;?
  2. LABETALOL [Concomitant]
     Active Substance: LABETALOL
  3. IRON [Concomitant]
     Active Substance: IRON
  4. VITAMINS [Concomitant]
     Active Substance: VITAMINS
  5. MAGNESIUM [Concomitant]
     Active Substance: MAGNESIUM
  6. VITAMIN B12 [Concomitant]
     Active Substance: CYANOCOBALAMIN

REACTIONS (8)
  - Dry mouth [None]
  - Lip dry [None]
  - Dry skin [None]
  - Skin fissures [None]
  - Urticaria [None]
  - Dyspnoea [None]
  - Headache [None]
  - Exposure during pregnancy [None]

NARRATIVE: CASE EVENT DATE: 20250310
